FAERS Safety Report 5032081-9 (Version None)
Quarter: 2006Q2

REPORT INFORMATION
  Report Type: 
  Country: None (occurrence: None)
  Receive Date: 20060619
  Receipt Date: 20060601
  Transmission Date: 20061013
  Serious: Yes (Other)
  Sender: FDA-Public Use
  Company Number: US_990318659

PATIENT
  Age: 66 Year
  Sex: Female
  Weight: 60 kg

DRUGS (11)
  1. EVISTA [Suspect]
     Indication: OSTEOPOROSIS
     Dosage: 60 MG DAILY (1/D) ORAL
     Route: 048
     Dates: start: 19980301
  2. DIURETIC [Concomitant]
  3. SYNTHROID [Concomitant]
  4. MIACALCIN [Concomitant]
  5. MULTI-VITAMIN [Concomitant]
  6. FOLIC ACID [Concomitant]
  7. COENZYME Q10 [Concomitant]
  8. LEVOFLOXACIN [Concomitant]
  9. MAGNESIUM (MAGNESIUM) [Concomitant]
  10. CALCIUM (CALCIUM) [Concomitant]
  11. VITAMIN D [Concomitant]

REACTIONS (39)
  - ABDOMINAL DISCOMFORT [None]
  - ABDOMINAL DISTENSION [None]
  - ABDOMINAL PAIN [None]
  - AFFECT LABILITY [None]
  - ARTHRALGIA [None]
  - BACK PAIN [None]
  - BLOOD CHOLESTEROL INCREASED [None]
  - CATARACT [None]
  - COLON NEOPLASM [None]
  - CONSTIPATION [None]
  - CRYING [None]
  - DEPRESSION [None]
  - DIARRHOEA [None]
  - DIFFICULTY IN WALKING [None]
  - DYSPEPSIA [None]
  - ERYTHEMA [None]
  - EYE PAIN [None]
  - EYE PRURITUS [None]
  - EYE SWELLING [None]
  - EYELID OEDEMA [None]
  - FLANK PAIN [None]
  - HEADACHE [None]
  - HOT FLUSH [None]
  - HYPERSENSITIVITY [None]
  - INJURY CORNEAL [None]
  - JOINT SWELLING [None]
  - MOOD SWINGS [None]
  - MUSCLE SPASMS [None]
  - MUSCLE STRAIN [None]
  - MUSCULOSKELETAL STIFFNESS [None]
  - NERVOUSNESS [None]
  - OEDEMA PERIPHERAL [None]
  - PAIN IN EXTREMITY [None]
  - PERIPHERAL COLDNESS [None]
  - SINUS CONGESTION [None]
  - SKIN DISCOLOURATION [None]
  - STRESS [None]
  - SWELLING [None]
  - WEIGHT INCREASED [None]
